FAERS Safety Report 5922300-6 (Version None)
Quarter: 2008Q4

REPORT INFORMATION
  Report Type: 
  Country: None (occurrence: None)
  Receive Date: 20081015
  Receipt Date: 20081008
  Transmission Date: 20090506
  Serious: Yes (Other)
  Sender: FDA-Public Use
  Company Number: WWISSUE-224

PATIENT
  Sex: Female

DRUGS (1)
  1. PREDNISONE [Suspect]
     Indication: AUTOIMMUNE DISORDER
     Dosage: 80MG/20MG Q.I.D./ORAL
     Route: 048
     Dates: start: 20081004, end: 20081008

REACTIONS (6)
  - DRUG INEFFECTIVE [None]
  - INFLAMMATION [None]
  - MOVEMENT DISORDER [None]
  - PAIN [None]
  - PRODUCT QUALITY ISSUE [None]
  - SENSORY DISTURBANCE [None]
